FAERS Safety Report 21867432 (Version 1)
Quarter: 2023Q1

REPORT INFORMATION
  Report Type: Spontaneous
  Country: DE (occurrence: DE)
  Receive Date: 20230116
  Receipt Date: 20230116
  Transmission Date: 20230417
  Serious: Yes (Other)
  Sender: FDA-Public Use
  Company Number: DE-UCBSA-2023001747

PATIENT
  Age: 18 Year

DRUGS (1)
  1. FENFLURAMINE HYDROCHLORIDE [Suspect]
     Active Substance: FENFLURAMINE HYDROCHLORIDE
     Indication: Severe myoclonic epilepsy of infancy
     Dosage: 26 MILLIGRAM (HIGHEST DOSE)

REACTIONS (2)
  - Hallucination [Unknown]
  - Drug ineffective [Unknown]
